FAERS Safety Report 25821888 (Version 2)
Quarter: 2025Q3

REPORT INFORMATION
  Report Type: Spontaneous
  Country: US (occurrence: US)
  Receive Date: 20250919
  Receipt Date: 20250925
  Transmission Date: 20251021
  Serious: No
  Sender: STALLERGENES
  Company Number: US-STALCOR-2025-AER-02368

PATIENT
  Age: 32 Year
  Sex: Female
  Weight: 74.84 kg

DRUGS (20)
  1. DOG EPITHELIA [Suspect]
     Active Substance: CANIS LUPUS FAMILIARIS SKIN
     Indication: Asthma
     Route: 058
     Dates: start: 20230914
  2. DOG EPITHELIA [Suspect]
     Active Substance: CANIS LUPUS FAMILIARIS SKIN
     Indication: Rhinitis allergic
     Route: 058
  3. SHAGBARK HICKORY POLLEN [Suspect]
     Active Substance: CARYA OVATA POLLEN
     Indication: Asthma
     Route: 058
     Dates: start: 20230914
  4. SHAGBARK HICKORY POLLEN [Suspect]
     Active Substance: CARYA OVATA POLLEN
     Indication: Rhinitis allergic
     Route: 058
  5. MUGWORT [Suspect]
     Active Substance: ARTEMISIA VULGARIS POLLEN
     Indication: Asthma
     Route: 058
     Dates: start: 20230914
  6. MUGWORT [Suspect]
     Active Substance: ARTEMISIA VULGARIS POLLEN
     Indication: Rhinitis allergic
     Route: 058
  7. STANDARDIZED SWEET VERNAL GRASS [Suspect]
     Active Substance: ANTHOXANTHUM ODORATUM POLLEN
     Indication: Asthma
     Route: 058
     Dates: start: 20230914
  8. STANDARDIZED SWEET VERNAL GRASS [Suspect]
     Active Substance: ANTHOXANTHUM ODORATUM POLLEN
     Indication: Rhinitis allergic
     Route: 058
  9. STANDARDIZED TIMOTHY GRASS [Suspect]
     Active Substance: PHLEUM PRATENSE POLLEN
     Indication: Asthma
     Route: 058
     Dates: start: 20230914
  10. STANDARDIZED TIMOTHY GRASS [Suspect]
     Active Substance: PHLEUM PRATENSE POLLEN
     Indication: Rhinitis allergic
     Route: 058
  11. ALLERGENIC EXTRACTS STANDARDIZED MITE (DERMATOPHAGOIDES PTERONYSSINUS) [Suspect]
     Active Substance: DERMATOPHAGOIDES PTERONYSSINUS
     Indication: Asthma
     Route: 058
     Dates: start: 20230914
  12. ALLERGENIC EXTRACTS STANDARDIZED MITE (DERMATOPHAGOIDES PTERONYSSINUS) [Suspect]
     Active Substance: DERMATOPHAGOIDES PTERONYSSINUS
     Indication: Rhinitis allergic
     Route: 058
  13. ALLERGENIC EXTRACTS STANDARDIZED MITE (DERMATOPHAGOIDES FARINAE) [Suspect]
     Active Substance: DERMATOPHAGOIDES FARINAE
     Indication: Asthma
     Route: 058
     Dates: start: 20230914
  14. ALLERGENIC EXTRACTS STANDARDIZED MITE (DERMATOPHAGOIDES FARINAE) [Suspect]
     Active Substance: DERMATOPHAGOIDES FARINAE
     Indication: Rhinitis allergic
     Route: 058
  15. STANDARDIZED CAT HAIR [Suspect]
     Active Substance: FELIS CATUS HAIR
     Indication: Asthma
     Route: 058
     Dates: start: 20230914
  16. STANDARDIZED CAT HAIR [Suspect]
     Active Substance: FELIS CATUS HAIR
     Indication: Rhinitis allergic
     Route: 058
  17. HUMAN SERUM ALBUMIN SALINE DILUENT [Concomitant]
     Indication: Asthma
     Route: 058
     Dates: start: 20230914
  18. HUMAN SERUM ALBUMIN SALINE DILUENT [Concomitant]
     Indication: Rhinitis allergic
     Route: 058
  19. FEXOFENADINE [Concomitant]
     Active Substance: FEXOFENADINE HYDROCHLORIDE
     Indication: Product used for unknown indication
  20. FLUTICASONE PROPIONATE [Concomitant]
     Active Substance: FLUTICASONE PROPIONATE
     Indication: Product used for unknown indication
     Route: 045

REACTIONS (3)
  - Swelling [Recovered/Resolved]
  - Urticaria [Recovered/Resolved]
  - Local reaction [Recovered/Resolved]

NARRATIVE: CASE EVENT DATE: 20250718
